FAERS Safety Report 17781196 (Version 1)
Quarter: 2020Q2

REPORT INFORMATION
  Report Type: Spontaneous
  Country: US (occurrence: US)
  Receive Date: 20200514
  Receipt Date: 20200514
  Transmission Date: 20200714
  Serious: No
  Sender: FDA-Public Use
  Company Number: US-AMGEN-USASP2020076861

PATIENT
  Sex: Female

DRUGS (4)
  1. PROGESTERONE. [Concomitant]
     Active Substance: PROGESTERONE
  2. PROLIA [Suspect]
     Active Substance: DENOSUMAB
     Indication: OSTEOPOROSIS
     Dosage: 60 MILLIGRAM, Q6MO
     Route: 065
     Dates: start: 2018
  3. FENUGREEK [Concomitant]
     Active Substance: FENUGREEK SEED
     Indication: BLOOD CHOLESTEROL ABNORMAL
  4. LEVOTHYROXINE. [Concomitant]
     Active Substance: LEVOTHYROXINE

REACTIONS (5)
  - Pustule [Unknown]
  - Skin ulcer [Unknown]
  - Bursitis [Unknown]
  - Exostosis [Unknown]
  - Myalgia [Unknown]

NARRATIVE: CASE EVENT DATE: 2018
